FAERS Safety Report 19376826 (Version 3)
Quarter: 2021Q3

REPORT INFORMATION
  Report Type: Report from Study
  Country: HU (occurrence: HU)
  Receive Date: 20210604
  Receipt Date: 20210723
  Transmission Date: 20211014
  Serious: Yes (Life-Threatening, Hospitalization)
  Sender: FDA-Public Use
  Company Number: HU-ROCHE-2841227

PATIENT
  Age: 70 Year
  Sex: Male
  Weight: 75.15 kg

DRUGS (11)
  1. TIRAGOLUMAB. [Suspect]
     Active Substance: TIRAGOLUMAB
     Indication: SQUAMOUS CELL CARCINOMA OF HEAD AND NECK
     Dosage: START DATE OF MOST RECENT DOSE OF STUDY DRUG PRIOR TO AE/SAE 11/MAY/2021
     Route: 042
     Dates: start: 20210511
  2. ATEZOLIZUMAB. [Suspect]
     Active Substance: ATEZOLIZUMAB
     Indication: SQUAMOUS CELL CARCINOMA OF HEAD AND NECK
     Dosage: START DATE OF MOST RECENT DOSE OF STUDY DRUG PRIOR TO AE 11/MAY/2021
     Route: 041
     Dates: start: 20210511
  3. SOLU?MEDROL [Concomitant]
     Active Substance: METHYLPREDNISOLONE SODIUM SUCCINATE
     Indication: INFUSION RELATED REACTION
     Route: 042
     Dates: start: 20210511, end: 20210511
  4. APRANAX [Concomitant]
     Active Substance: NAPROXEN
     Indication: NECK PAIN
  5. 5?FLUOROURACIL [Concomitant]
     Active Substance: FLUOROURACIL
     Indication: NEOPLASM MALIGNANT
     Dates: start: 20210628
  6. DORETA [Concomitant]
     Active Substance: ACETAMINOPHEN\TRAMADOL HYDROCHLORIDE
     Indication: NECK PAIN
  7. COVID?19 VACCINE [Concomitant]
  8. CETUXIMAB. [Concomitant]
     Active Substance: CETUXIMAB
     Indication: NEOPLASM MALIGNANT
     Dates: start: 20210628
  9. COVEREX AS KOMB [Concomitant]
     Indication: HYPERTENSION
  10. COVEREX AS [Concomitant]
     Active Substance: PERINDOPRIL ARGININE
     Indication: HYPERTENSION
  11. CARBOPLATIN. [Concomitant]
     Active Substance: CARBOPLATIN
     Indication: NEOPLASM MALIGNANT
     Dates: start: 20210628

REACTIONS (1)
  - Immune-mediated hepatic disorder [Recovering/Resolving]

NARRATIVE: CASE EVENT DATE: 20210531
